FAERS Safety Report 8778821 (Version 1)
Quarter: 2012Q4

REPORT INFORMATION
  Report Type: 
  Country: US (occurrence: US)
  Receive Date: 20120912
  Receipt Date: 20120912
  Transmission Date: 20130627
  Serious: No
  Sender: FDA-Public Use
  Company Number: US-PFIZER INC-2012223982

PATIENT
  Age: 49 Year
  Sex: Male
  Weight: 90.7 kg

DRUGS (1)
  1. LIPITOR [Suspect]
     Indication: BLOOD CHOLESTEROL INCREASED
     Dosage: 80 mg, daily
     Route: 048
     Dates: start: 2004

REACTIONS (2)
  - Blood triglycerides increased [Unknown]
  - Anaemia [Unknown]
